FAERS Safety Report 13773867 (Version 2)
Quarter: 2017Q3

REPORT INFORMATION
  Report Type: Spontaneous
  Country: US (occurrence: US)
  Receive Date: 20170720
  Receipt Date: 20170721
  Transmission Date: 20171127
  Serious: Yes (Hospitalization)
  Sender: FDA-Public Use
  Company Number: US-CELGENEUS-USA-20170704119

PATIENT
  Age: 68 Year
  Sex: Male

DRUGS (1)
  1. REVLIMID [Suspect]
     Active Substance: LENALIDOMIDE
     Indication: MYELODYSPLASTIC SYNDROME
     Dosage: 25 MILLIGRAM
     Route: 048
     Dates: start: 201702

REACTIONS (5)
  - Hypersensitivity [Unknown]
  - Pyrexia [Unknown]
  - Erythema [Unknown]
  - Ear swelling [Unknown]
  - Swelling face [Unknown]

NARRATIVE: CASE EVENT DATE: 201703
